FAERS Safety Report 11012640 (Version 1)
Quarter: 2015Q2

REPORT INFORMATION
  Report Type: Spontaneous
  Country: US (occurrence: None)
  Receive Date: 20150410
  Receipt Date: 20150410
  Transmission Date: 20150821
  Serious: Yes (Hospitalization, Disabling, Other)
  Sender: FDA-Public Use
  Company Number: None

PATIENT
  Age: 50 Year
  Sex: Female
  Weight: 90.72 kg

DRUGS (1)
  1. AVELOX [Suspect]
     Active Substance: MOXIFLOXACIN HYDROCHLORIDE
     Indication: SINUSITIS
     Dosage: 20 PILLS, TAKEN BY MOUTH
     Route: 048

REACTIONS (14)
  - Depression [None]
  - Insomnia [None]
  - Mental disorder [None]
  - Hyperhidrosis [None]
  - Nightmare [None]
  - Anxiety [None]
  - Alopecia [None]
  - Tendonitis [None]
  - Anger [None]
  - Intervertebral disc protrusion [None]
  - Gastrointestinal disorder [None]
  - Food allergy [None]
  - Meniscus injury [None]
  - Cartilage injury [None]
